FAERS Safety Report 20441602 (Version 6)
Quarter: 2022Q2

REPORT INFORMATION
  Report Type: Spontaneous
  Country: US (occurrence: US)
  Receive Date: 20220208
  Receipt Date: 20220509
  Transmission Date: 20220720
  Serious: Yes (Other)
  Sender: FDA-Public Use
  Company Number: US-UNITED THERAPEUTICS-UNT-2022-002070

PATIENT
  Age: 29 Year
  Sex: Female

DRUGS (6)
  1. REMODULIN [Suspect]
     Active Substance: TREPROSTINIL
     Indication: Pulmonary arterial hypertension
     Dosage: UNK, CONTINUING
     Route: 058
     Dates: start: 20201216
  2. REMODULIN [Suspect]
     Active Substance: TREPROSTINIL
     Dosage: 0.061 ?G/KG, CONTINUING
     Route: 058
  3. REMODULIN [Suspect]
     Active Substance: TREPROSTINIL
     Dosage: 0.019 ?G/KG, CONTINUING
     Route: 058
  4. REMODULIN [Suspect]
     Active Substance: TREPROSTINIL
     Dosage: 0.0265 ?G/KG, CONTINUING
     Route: 058
  5. REMODULIN [Suspect]
     Active Substance: TREPROSTINIL
     Dosage: 0.0432 ?G/KG, CONTINUING
     Route: 058
     Dates: start: 20220115
  6. REMODULIN [Suspect]
     Active Substance: TREPROSTINIL
     Dosage: 0.0488 ?G/KG, CONTINUING
     Route: 058

REACTIONS (16)
  - Ascites [Unknown]
  - Diarrhoea [Not Recovered/Not Resolved]
  - Headache [Not Recovered/Not Resolved]
  - Pain in jaw [Not Recovered/Not Resolved]
  - Pain [Not Recovered/Not Resolved]
  - Infusion site pain [Not Recovered/Not Resolved]
  - Flushing [Not Recovered/Not Resolved]
  - Infusion site erythema [Not Recovered/Not Resolved]
  - Infusion site swelling [Not Recovered/Not Resolved]
  - Swelling of eyelid [Unknown]
  - Weight increased [Unknown]
  - Nausea [Unknown]
  - Tinnitus [Recovered/Resolved]
  - Device kink [Not Recovered/Not Resolved]
  - Premenstrual syndrome [Unknown]
  - Infusion site inflammation [Unknown]

NARRATIVE: CASE EVENT DATE: 20220101
